FAERS Safety Report 9080106 (Version 1)
Quarter: 2013Q1

REPORT INFORMATION
  Report Type: Report from Study
  Country: US (occurrence: US)
  Receive Date: 20130130
  Receipt Date: 20130130
  Transmission Date: 20140127
  Serious: No
  Sender: FDA-Public Use
  Company Number: US-ABBOTT-12P-163-0959932-00

PATIENT
  Sex: Male

DRUGS (1)
  1. HUMIRA 40 MG/0.8 ML PEN [Suspect]
     Indication: CROHN^S DISEASE

REACTIONS (7)
  - Fatigue [Unknown]
  - Sneezing [Unknown]
  - Hair growth abnormal [Unknown]
  - Orthostatic hypotension [Unknown]
  - Nausea [Unknown]
  - Headache [Unknown]
  - Oropharyngeal pain [Unknown]
